FAERS Safety Report 7759533-2 (Version None)
Quarter: 2011Q3

REPORT INFORMATION
  Report Type: 
  Country: None (occurrence: None)
  Receive Date: 20110919
  Receipt Date: 20110919
  Transmission Date: 20111222
  Serious: Yes (Other)
  Sender: FDA-Public Use
  Company Number: None

PATIENT
  Sex: Female
  Weight: 52.163 kg

DRUGS (1)
  1. CIPROFLOXACIN [Suspect]
     Indication: URINARY TRACT INFECTION
     Dosage: 500MG
     Route: 048
     Dates: start: 20110827, end: 20110828

REACTIONS (13)
  - MUSCLE INJURY [None]
  - GAIT DISTURBANCE [None]
  - FEELING ABNORMAL [None]
  - IMPAIRED WORK ABILITY [None]
  - ANXIETY [None]
  - MUSCULAR WEAKNESS [None]
  - MUSCLE SPASMS [None]
  - ABASIA [None]
  - JOINT STIFFNESS [None]
  - ACTIVITIES OF DAILY LIVING IMPAIRED [None]
  - EYE PAIN [None]
  - TENDON DISORDER [None]
  - PAIN [None]
